FAERS Safety Report 21825226 (Version 1)
Quarter: 2023Q1

REPORT INFORMATION
  Report Type: Spontaneous
  Country: US (occurrence: US)
  Receive Date: 20230105
  Receipt Date: 20230105
  Transmission Date: 20230418
  Serious: No
  Sender: FDA-Public Use
  Company Number: US-COOPERSURGICAL, INC.-US-2022CPS001481

PATIENT
  Age: 33 Year
  Sex: Female
  Weight: 53.968 kg

DRUGS (5)
  1. PARAGARD T 380A [Suspect]
     Active Substance: COPPER
     Indication: Contraception
     Dosage: UNK
     Route: 015
     Dates: start: 20220425, end: 20220425
  2. METFORMIN HYDROCHLORIDE [Concomitant]
     Active Substance: METFORMIN HYDROCHLORIDE
     Indication: Glucose tolerance impaired
     Dosage: 500 MILLIGRAM
     Route: 065
  3. VALTREX S [Concomitant]
     Indication: Herpes simplex
     Dosage: UNK UNK, PRN
     Route: 065
  4. GLUCOSAMINE CHONDROITIN [CHONDROITIN SULFATE;GLUCOSAMINE] [Concomitant]
     Indication: Product used for unknown indication
     Route: 065
  5. DOCUSATE SODIUM [DOCUSATE SODIUM;SENNOSIDE A+B] [Concomitant]
     Indication: Constipation
     Dosage: UNK, PRN
     Route: 065

REACTIONS (2)
  - Complication of device insertion [Recovered/Resolved]
  - Device placement issue [Recovered/Resolved]

NARRATIVE: CASE EVENT DATE: 20220425
